FAERS Safety Report 6260169-3 (Version None)
Quarter: 2009Q3

REPORT INFORMATION
  Report Type: 
  Country: None (occurrence: None)
  Receive Date: 20090708
  Receipt Date: 20090629
  Transmission Date: 20100115
  Serious: Yes (Death)
  Sender: FDA-Public Use
  Company Number: A0795578A

PATIENT
  Sex: Male
  Weight: 75 kg

DRUGS (2)
  1. SERETIDE [Suspect]
     Indication: ASTHMA
     Dosage: 2PUFF TWICE PER DAY
     Dates: start: 20080101, end: 20090603
  2. CAPTOPRIL [Concomitant]
     Dates: start: 20040101, end: 20090602

REACTIONS (1)
  - INFARCTION [None]
